FAERS Safety Report 10054953 (Version 1)
Quarter: 2014Q2

REPORT INFORMATION
  Report Type: Spontaneous
  Country: US (occurrence: US)
  Receive Date: 20140402
  Receipt Date: 20140402
  Transmission Date: 20141212
  Serious: No
  Sender: FDA-Public Use
  Company Number: US-009507513-1403USA013300

PATIENT
  Age: 90 Year
  Sex: Female

DRUGS (3)
  1. FOSAMAX [Suspect]
     Indication: OSTEOPOROSIS
     Dosage: UNK
     Route: 048
     Dates: start: 2000, end: 2009
  2. FOSAMAX [Suspect]
     Indication: ARTHRITIS
  3. ASPIRIN [Concomitant]

REACTIONS (1)
  - Drug ineffective [Unknown]
